FAERS Safety Report 7125230 (Version 3)
Quarter: 2014Q3

REPORT INFORMATION
  Report Type: Spontaneous
  Country: None (occurrence: None)
  Receive Date: 20090910
  Receipt Date: 20140904
  Transmission Date: 20150326
  Serious: Yes (Hospitalization, Other)
  Sender: FDA-Public Use
  Company Number: 2009S1006946

PATIENT
  Age: 72 Year
  Sex: Female

DRUGS (3)
  1. PHOSPHO-SODA [Suspect]
     Active Substance: SODIUM PHOSPHATE, DIBASIC\SODIUM PHOSPHATE, MONOBASIC
     Indication: COLONOSCOPY
     Dosage: PO
     Route: 048
     Dates: start: 20051012, end: 20051013
  2. PHOSPHO-SODA [Suspect]
     Active Substance: SODIUM PHOSPHATE, DIBASIC\SODIUM PHOSPHATE, MONOBASIC
     Indication: ENDOSCOPY
     Dosage: PO
     Route: 048
     Dates: start: 20051012, end: 20051013
  3. FOSAMAX [Concomitant]
     Active Substance: ALENDRONATE SODIUM

REACTIONS (52)
  - Influenza like illness [None]
  - Renal failure chronic [None]
  - Metabolic acidosis [None]
  - Epistaxis [None]
  - Dyspepsia [None]
  - Restless legs syndrome [None]
  - Poor quality sleep [None]
  - Mesenteric arteriosclerosis [None]
  - Peripheral artery stenosis [None]
  - Carotid artery stenosis [None]
  - Haemodialysis [None]
  - Bacteraemia [None]
  - Hypouricaemia [None]
  - Abdominal infection [None]
  - Cardiac pacemaker insertion [None]
  - Post procedural complication [None]
  - Nausea [None]
  - Dry mouth [None]
  - Lumbar radiculopathy [None]
  - Ovarian cyst [None]
  - Adhesion [None]
  - Peritoneal dialysis complication [None]
  - Deep vein thrombosis postoperative [None]
  - Renal failure acute [None]
  - Dysgeusia [None]
  - Nephrocalcinosis [None]
  - Muscle spasms [None]
  - Hyperparathyroidism secondary [None]
  - Ischaemic nephropathy [None]
  - Nephrogenic anaemia [None]
  - Toxicity to various agents [None]
  - Device related infection [None]
  - Oesophageal candidiasis [None]
  - Fatigue [None]
  - Weight decreased [None]
  - Bacteriuria [None]
  - Gingival abscess [None]
  - Thrombosis in device [None]
  - Jugular vein thrombosis [None]
  - Dialysis [None]
  - Intervertebral disc protrusion [None]
  - Hypertension [None]
  - Tubulointerstitial nephritis [None]
  - Peritoneal dialysis [None]
  - Medical device complication [None]
  - Acquired oesophageal web [None]
  - Gastrooesophageal reflux disease [None]
  - Vascular access complication [None]
  - Dysphagia [None]
  - Renal transplant [None]
  - Asthenia [None]
  - Arteriosclerosis [None]

NARRATIVE: CASE EVENT DATE: 200603
